FAERS Safety Report 8165188-8 (Version None)
Quarter: 2012Q1

REPORT INFORMATION
  Report Type: 
  Country: None (occurrence: None)
  Receive Date: 20120227
  Receipt Date: 20120221
  Transmission Date: 20120608
  Serious: No
  Sender: FDA-Public Use
  Company Number: US-PFIZER INC-2012015732

PATIENT
  Sex: Female

DRUGS (2)
  1. LYRICA [Suspect]
     Dosage: UNK
  2. LYRICA [Suspect]
     Dosage: 800 MG, UNK

REACTIONS (4)
  - OVERDOSE [None]
  - INFLUENZA [None]
  - VISUAL IMPAIRMENT [None]
  - DRUG WITHDRAWAL SYNDROME [None]
